FAERS Safety Report 14052522 (Version 1)
Quarter: 2017Q4

REPORT INFORMATION
  Report Type: Spontaneous
  Country: DK (occurrence: DK)
  Receive Date: 20171006
  Receipt Date: 20171006
  Transmission Date: 20180321
  Serious: Yes (Other)
  Sender: FDA-Public Use
  Company Number: PHHY2017DK143533

PATIENT
  Age: 16 Year
  Sex: Female
  Weight: 75 kg

DRUGS (1)
  1. FEMINIL MITE [Suspect]
     Active Substance: CYPROTERONE ACETATE\ETHINYL ESTRADIOL
     Indication: CONTRACEPTION
     Dosage: 1 DF, QD, STYRKE: 2,0 + 0,035 MG
     Route: 048
     Dates: start: 20160222, end: 20170823

REACTIONS (4)
  - Amaurosis fugax [Unknown]
  - Transient ischaemic attack [Recovering/Resolving]
  - Muscle twitching [Unknown]
  - Hemiparesis [Unknown]

NARRATIVE: CASE EVENT DATE: 20170201
